FAERS Safety Report 8357959-X (Version None)
Quarter: 2012Q2

REPORT INFORMATION
  Report Type: 
  Country: None (occurrence: None)
  Receive Date: 20120511
  Receipt Date: 20120426
  Transmission Date: 20120825
  Serious: Yes (Death)
  Sender: FDA-Public Use
  Company Number: 2012P1018176

PATIENT
  Age: 5 Year
  Sex: Female

DRUGS (4)
  1. DELSYM [Suspect]
     Indication: INFLUENZA LIKE ILLNESS
     Dosage: 5 ML;BID;PO, 5 ML;X1;PO, 2.5 ML;X1;PO
     Route: 048
     Dates: start: 20120211, end: 20120211
  2. DELSYM [Suspect]
     Indication: INFLUENZA LIKE ILLNESS
     Dosage: 5 ML;BID;PO, 5 ML;X1;PO, 2.5 ML;X1;PO
     Route: 048
     Dates: start: 20120209, end: 20120210
  3. DELSYM [Suspect]
     Indication: INFLUENZA LIKE ILLNESS
     Dosage: 5 ML;BID;PO, 5 ML;X1;PO, 2.5 ML;X1;PO
     Route: 048
     Dates: start: 20120211, end: 20120211
  4. CETIRIZINE HYDROCHLORIDE ALLERGY [Suspect]
     Indication: INFLUENZA LIKE ILLNESS
     Dosage: 2.5 MG;BID;PO
     Route: 048
     Dates: start: 20120209, end: 20120212

REACTIONS (5)
  - TOXICITY TO VARIOUS AGENTS [None]
  - MUSCLE SPASMS [None]
  - FEELING HOT [None]
  - UNRESPONSIVE TO STIMULI [None]
  - DYSPNOEA [None]
